FAERS Safety Report 6064369-7 (Version None)
Quarter: 2009Q1

REPORT INFORMATION
  Report Type: 
  Country: None (occurrence: None)
  Receive Date: 20090203
  Receipt Date: 20090203
  Transmission Date: 20090719
  Serious: Yes (Hospitalization, Other)
  Sender: FDA-Public Use
  Company Number: None

PATIENT
  Age: 47 Year
  Sex: Female
  Weight: 63.5036 kg

DRUGS (2)
  1. WELLBUTRIN [Suspect]
     Indication: SMOKING CESSATION THERAPY
     Dosage: 1 TABLET 3 TIMES DAILY PO
     Route: 048
     Dates: start: 20090108, end: 20090127
  2. NICOTINE [Suspect]
     Indication: SMOKING CESSATION THERAPY
     Dosage: APPLY 1 PATCH DAILY EVERY 24HRS TRANSDERMAL
     Route: 062
     Dates: start: 20090123, end: 20090127

REACTIONS (5)
  - CRYING [None]
  - DELIRIUM [None]
  - ILL-DEFINED DISORDER [None]
  - MEMORY IMPAIRMENT [None]
  - SPEECH DISORDER [None]
